FAERS Safety Report 8512131-5 (Version None)
Quarter: 2012Q3

REPORT INFORMATION
  Report Type: 
  Country: None (occurrence: None)
  Receive Date: 20120716
  Receipt Date: 20120706
  Transmission Date: 20120928
  Serious: Yes (Other)
  Sender: FDA-Public Use
  Company Number: US-009507513-1207USA001851

PATIENT

DRUGS (1)
  1. NUVARING [Suspect]

REACTIONS (1)
  - PULMONARY EMBOLISM [None]
